FAERS Safety Report 9570525 (Version 2)
Quarter: 2013Q3

REPORT INFORMATION
  Report Type: Spontaneous
  Country: US (occurrence: US)
  Receive Date: 20130930
  Receipt Date: 20130930
  Transmission Date: 20140515
  Serious: No
  Sender: FDA-Public Use
  Company Number: US-AMGEN-USASP2013056480

PATIENT
  Age: 18 Year
  Sex: Male
  Weight: 140 kg

DRUGS (2)
  1. ENBREL [Suspect]
     Indication: PRODUCT USED FOR UNKNOWN INDICATION
     Dosage: 50 MG/ML, 2 TIMES/WK
     Route: 058
  2. ASA [Concomitant]
     Dosage: 81 MG, EC

REACTIONS (1)
  - Headache [Recovered/Resolved]
